FAERS Safety Report 4745995-1 (Version None)
Quarter: 2005Q3

REPORT INFORMATION
  Report Type: 
  Country: None (occurrence: None)
  Receive Date: 20050816
  Receipt Date: 20050413
  Transmission Date: 20060218
  Serious: Yes (Hospitalization, Disabling)
  Sender: FDA-Public Use
  Company Number: US-MERCK-0504USA02161

PATIENT
  Age: 75 Year
  Sex: Female
  Weight: 82 kg

DRUGS (4)
  1. VIOXX [Suspect]
     Indication: ARTHRITIS
     Route: 048
     Dates: start: 20030127, end: 20030412
  2. LOPRESSOR [Concomitant]
     Indication: HYPERTENSION
     Route: 048
     Dates: start: 19960101
  3. DYAZIDE [Concomitant]
     Indication: HYPERTENSION
     Route: 048
     Dates: start: 19960101
  4. TYLENOL (CAPLET) [Concomitant]
     Indication: PAIN
     Route: 048
     Dates: start: 19960101

REACTIONS (7)
  - BLINDNESS [None]
  - BLOOD CHOLESTEROL INCREASED [None]
  - CEREBROVASCULAR ACCIDENT [None]
  - DIABETES MELLITUS [None]
  - HYPERTENSION [None]
  - OSTEOPOROSIS [None]
  - PNEUMONIA [None]
